FAERS Safety Report 19681892 (Version 1)
Quarter: 2021Q3

REPORT INFORMATION
  Report Type: Spontaneous
  Country: BE (occurrence: BE)
  Receive Date: 20210810
  Receipt Date: 20210810
  Transmission Date: 20211014
  Serious: Yes (Hospitalization, Other)
  Sender: FDA-Public Use
  Company Number: BE-OXFORD PHARMACEUTICALS, LLC-2114839

PATIENT
  Age: 33 Year
  Sex: Female

DRUGS (5)
  1. VALPROIC ACID. [Suspect]
     Active Substance: VALPROIC ACID
  2. LITHIUM. [Concomitant]
     Active Substance: LITHIUM
  3. CLOZAPINE. [Concomitant]
     Active Substance: CLOZAPINE
  4. LORAZEPAM. [Suspect]
     Active Substance: LORAZEPAM
     Indication: CATATONIA
     Route: 042
  5. ARIPIPRAZOLE. [Concomitant]
     Active Substance: ARIPIPRAZOLE

REACTIONS (4)
  - Product use in unapproved indication [Unknown]
  - Stupor [Recovered/Resolved]
  - Metabolic encephalopathy [Recovered/Resolved]
  - Drug interaction [Recovered/Resolved]
